FAERS Safety Report 8599143-0 (Version None)
Quarter: 2012Q3

REPORT INFORMATION
  Report Type: 
  Country: None (occurrence: None)
  Receive Date: 20120816
  Receipt Date: 20120803
  Transmission Date: 20120928
  Serious: No
  Sender: FDA-Public Use
  Company Number: US-ASTRAZENECA-2012SE55433

PATIENT
  Age: 57 Year
  Sex: Female
  Weight: 106.2 kg

DRUGS (11)
  1. ASTEPRO [Concomitant]
     Dosage: ONE SPRAY PER NOSTRIL TWO TIMES A DAY
  2. TRAMADOL [Concomitant]
     Indication: PAIN
  3. MUCINEX [Concomitant]
     Indication: CHEST DISCOMFORT
     Dosage: 200-400 MG EVERY FOUR HOURS
  4. IPRATROPIUM BROMIDE [Concomitant]
     Dosage: ONE TO TWO SPRAY TWICE A DAY, AS NEEDED
     Route: 055
  5. PREDNISONE TAB [Concomitant]
     Dosage: 20 MG ONE TABLET EVERY MORNING AND THEN HALF TABLET EVERY DAY
  6. PREDNISONE TAB [Concomitant]
     Dates: start: 20120411
  7. ATROVENT [Concomitant]
     Dosage: AS REQUIRED
  8. SYMBICORT [Suspect]
     Dosage: 80-4.5 MCG TWO PUFFS TWO TIMES A DAY
     Route: 055
  9. METOPROLOL SUCCINATE [Concomitant]
  10. PATANASE [Concomitant]
     Dosage: 0.6 PERCENT ONE TO TWO SPRAY TWICE A DAY
     Route: 055
  11. VERAMYST [Concomitant]
     Dosage: 27.5 MCG ONE SPRAY TWO TIMES A DAY
     Route: 055
     Dates: start: 20120321

REACTIONS (6)
  - PRODUCTIVE COUGH [None]
  - RHINITIS [None]
  - THROAT IRRITATION [None]
  - SPUTUM INCREASED [None]
  - UPPER-AIRWAY COUGH SYNDROME [None]
  - CHOKING SENSATION [None]
